FAERS Safety Report 21165972 (Version 1)
Quarter: 2022Q3

REPORT INFORMATION
  Report Type: Spontaneous
  Country: US (occurrence: None)
  Receive Date: 20220802
  Receipt Date: 20220802
  Transmission Date: 20221026
  Serious: No
  Sender: FDA-Public Use
  Company Number: None

PATIENT
  Sex: Female

DRUGS (1)
  1. REMICADE [Suspect]
     Active Substance: INFLIXIMAB
     Indication: Psoriatic arthropathy
     Dosage: 400MG IV AT WEEK 0, 2, AND 6 THEN EVERY 8 WEEKS THEREAFTER. NO FURTHER INFO.?
     Route: 042
     Dates: start: 202204

REACTIONS (1)
  - Drug ineffective [None]
